FAERS Safety Report 5699565-1 (Version None)
Quarter: 2008Q2

REPORT INFORMATION
  Report Type: 
  Country: None (occurrence: None)
  Receive Date: 20080410
  Receipt Date: 20080402
  Transmission Date: 20081010
  Serious: Yes (Other)
  Sender: FDA-Public Use
  Company Number: BR-ABBOTT-08P-020-0442783-00

PATIENT
  Age: 14 Year
  Sex: Male

DRUGS (2)
  1. DEPAKENE [Suspect]
     Indication: EPILEPSY
     Route: 048
     Dates: start: 20080101
  2. DEPAKENE [Suspect]
     Indication: CONVULSION

REACTIONS (2)
  - CONVULSION [None]
  - DRUG INEFFECTIVE [None]
